FAERS Safety Report 5354755-2 (Version None)
Quarter: 2007Q2

REPORT INFORMATION
  Report Type: 
  Country: None (occurrence: None)
  Receive Date: 20070611
  Receipt Date: 20070530
  Transmission Date: 20071010
  Serious: Yes (Hospitalization)
  Sender: FDA-Public Use
  Company Number: 2007-00831

PATIENT
  Age: 51 Year
  Sex: Male

DRUGS (7)
  1. VELCADE [Suspect]
     Indication: MULTIPLE MYELOMA
     Dosage: SEE IMAGE;
     Dates: start: 20070113, end: 20070213
  2. VELCADE [Suspect]
     Indication: MULTIPLE MYELOMA
     Dosage: SEE IMAGE;
     Dates: start: 20070226, end: 20070301
  3. DEXAMETHASONE 0.5MG TAB [Concomitant]
  4. EXACIN (SEPAMICIN SULFATE) [Concomitant]
  5. CEFAZOLIN SODIUM [Concomitant]
  6. PURSENNID (SENNA LEAF) [Concomitant]
  7. MAGNESIUM OXIDE (MAGNESIUM OXIDE) [Concomitant]

REACTIONS (6)
  - CONSTIPATION [None]
  - DIARRHOEA [None]
  - HERPES ZOSTER [None]
  - PAIN [None]
  - ULCERATIVE KERATITIS [None]
  - UPPER RESPIRATORY TRACT INFECTION [None]
